FAERS Safety Report 20738797 (Version 1)
Quarter: 2022Q2

REPORT INFORMATION
  Report Type: Report from Study
  Country: US (occurrence: US)
  Receive Date: 20220422
  Receipt Date: 20220422
  Transmission Date: 20220721
  Serious: Yes (Hospitalization, Other)
  Sender: FDA-Public Use
  Company Number: US-JNJFOC-20210355077

PATIENT
  Sex: Male

DRUGS (2)
  1. ERLEADA [Suspect]
     Active Substance: APALUTAMIDE
     Indication: Hormone-refractory prostate cancer
     Route: 048
  2. ENZALUTAMIDE [Suspect]
     Active Substance: ENZALUTAMIDE
     Indication: Hormone-refractory prostate cancer
     Route: 065

REACTIONS (21)
  - Hypothyroidism [Unknown]
  - Mental impairment [Unknown]
  - Memory impairment [Unknown]
  - Cognitive disorder [Unknown]
  - Cardiovascular disorder [Unknown]
  - Hypertension [Unknown]
  - Seizure [Unknown]
  - Fall [Unknown]
  - Fracture [Unknown]
  - Hot flush [Unknown]
  - Arthralgia [Unknown]
  - Fatigue [Unknown]
  - Decreased appetite [Unknown]
  - Diarrhoea [Unknown]
  - Dizziness [Unknown]
  - Vertigo [Unknown]
  - Asthenia [Unknown]
  - Rash [Unknown]
  - Headache [Unknown]
  - Weight decreased [Unknown]
  - Oedema peripheral [Unknown]
